FAERS Safety Report 10176124 (Version 1)
Quarter: 2014Q2

REPORT INFORMATION
  Report Type: Spontaneous
  Country: US (occurrence: US)
  Receive Date: 20140516
  Receipt Date: 20140516
  Transmission Date: 20141212
  Serious: No
  Sender: FDA-Public Use
  Company Number: US-PFIZER INC-2014129421

PATIENT
  Age: 53 Year
  Sex: Female

DRUGS (3)
  1. FLAGYL [Suspect]
     Dosage: UNK
  2. AMITRIPTYLINE [Suspect]
     Dosage: UNK
  3. LEXAPRO [Suspect]
     Dosage: UNK

REACTIONS (2)
  - Food allergy [Unknown]
  - Drug hypersensitivity [Unknown]
